FAERS Safety Report 8151165-X (Version None)
Quarter: 2012Q1

REPORT INFORMATION
  Report Type: 
  Country: None (occurrence: None)
  Receive Date: 20120220
  Receipt Date: 20120216
  Transmission Date: 20120608
  Serious: Yes (Other)
  Sender: FDA-Public Use
  Company Number: GB-VIIV HEALTHCARE LIMITED-B0781815A

PATIENT
  Sex: Male

DRUGS (5)
  1. POTASSIUM BICARBONATE [Suspect]
  2. SODIUM ALGINATE [Suspect]
  3. ABACAVIR [Suspect]
  4. REYATAZ [Suspect]
  5. TENOFOVIR DISOPROXIL FUMARATE [Suspect]

REACTIONS (1)
  - VIRAL LOAD INCREASED [None]
